FAERS Safety Report 4507482-5 (Version None)
Quarter: 2004Q4

REPORT INFORMATION
  Report Type: 
  Country: None (occurrence: None)
  Receive Date: 20041118
  Receipt Date: 20041110
  Transmission Date: 20050328
  Serious: Yes (Hospitalization)
  Sender: FDA-Public Use
  Company Number: A001-002-006286

PATIENT
  Age: 95 Year
  Sex: Female
  Weight: 33.6 kg

DRUGS (3)
  1. ARICEPT [Suspect]
     Indication: MEMORY IMPAIRMENT
     Dosage: 10 MG, 1 IN 1 D; ORAL
     Route: 048
     Dates: start: 20041109
  2. ESTROGEN [Concomitant]
  3. LEVOTHYROXIDE  (LEVOTHYROXINE) [Concomitant]

REACTIONS (3)
  - CARDIAC ARREST [None]
  - CONFUSIONAL STATE [None]
  - VOMITING [None]
